FAERS Safety Report 12899225 (Version 1)
Quarter: 2016Q4

REPORT INFORMATION
  Report Type: Not Available
  Country: AT (occurrence: AT)
  Receive Date: 20161101
  Receipt Date: 20161101
  Transmission Date: 20170207
  Serious: Yes (Hospitalization)
  Sender: FDA-Public Use
  Company Number: AT-SYNTHON BV-NL01PV16_42127

PATIENT
  Age: 76 Year
  Sex: Female
  Weight: 73.2 kg

DRUGS (27)
  1. SEROQUEL [Suspect]
     Active Substance: QUETIAPINE FUMARATE
     Dosage: 400 MG, UNK
     Dates: end: 20150202
  2. RISPERDAL [Concomitant]
     Active Substance: RISPERIDONE
     Dosage: 1 MG, UNK
     Dates: start: 20150202, end: 20150202
  3. RISPERDAL [Concomitant]
     Active Substance: RISPERIDONE
     Dosage: 2 MG, UNK
     Dates: start: 20150203, end: 20150203
  4. MOTRIM                             /00086101/ [Concomitant]
     Active Substance: SULFAMETHOXAZOLE\TRIMETHOPRIM
     Dosage: UNK
     Dates: start: 20150209, end: 20150211
  5. OLEOVIT                            /01871301/ [Concomitant]
     Dosage: 28 GTT, UNK
  6. ZYPREXA [Concomitant]
     Active Substance: OLANZAPINE
     Dosage: 5 MG, UNK
     Dates: start: 20150213, end: 20150213
  7. LANITOP [Concomitant]
     Active Substance: METILDIGOXIN
     Dosage: 0.1 MG, UNK
  8. RAMIPRIL. [Concomitant]
     Active Substance: RAMIPRIL
  9. SEROQUEL [Suspect]
     Active Substance: QUETIAPINE FUMARATE
     Dosage: DOSIS INCREASING
     Dates: start: 20150115, end: 20150119
  10. SERTRALINE [Concomitant]
     Active Substance: SERTRALINE HYDROCHLORIDE
     Dosage: 50 MG, UNK
     Dates: start: 201412, end: 20141230
  11. RISPERDAL [Concomitant]
     Active Substance: RISPERIDONE
     Dosage: 4 MG, UNK
     Dates: start: 20150212, end: 20150212
  12. TEMESTA                            /00273201/ [Concomitant]
     Active Substance: LORAZEPAM
     Dosage: UNK
     Dates: start: 20150213, end: 20150227
  13. SERTRALINE [Concomitant]
     Active Substance: SERTRALINE HYDROCHLORIDE
     Dosage: 150 MG, UNK
     Dates: start: 20150214
  14. RISPERDAL [Concomitant]
     Active Substance: RISPERIDONE
     Dosage: 1 MG, UNK
     Dates: start: 20150213, end: 20150213
  15. TEMESTA                            /00273201/ [Concomitant]
     Active Substance: LORAZEPAM
     Dosage: 0.5-2.5 MG
     Dates: start: 20150202, end: 20150212
  16. ZYPREXA [Concomitant]
     Active Substance: OLANZAPINE
     Dosage: 7.5 MG, UNK
     Dates: start: 20150223
  17. CONCOR COR [Concomitant]
     Active Substance: BISOPROLOL FUMARATE
     Dosage: 5 MG, UNK
  18. SERTRALINE [Concomitant]
     Active Substance: SERTRALINE HYDROCHLORIDE
     Dosage: 100 MG, UNK
     Dates: start: 20141231, end: 20150213
  19. SIMVATIN [Concomitant]
     Dosage: 40 MG, UNK
  20. ZOLPIDEM [Suspect]
     Active Substance: ZOLPIDEM\ZOLPIDEM TARTRATE
     Dosage: 10 MG, UNK
     Dates: start: 20150122, end: 20150201
  21. PANTOPRAZOLE SODIUM SESQUIHYDRATE [Concomitant]
     Active Substance: PANTOPRAZOLE SODIUM
     Dosage: 20-40 MG
  22. RISPERDAL [Concomitant]
     Active Substance: RISPERIDONE
     Dosage: 3 MG, UNK
     Dates: start: 20150204, end: 20150211
  23. XARELTO [Concomitant]
     Active Substance: RIVAROXABAN
     Dosage: 20 MG, UNK
  24. DOMINAL (PROTHIPENDYL HYDROCHLORIDE) [Suspect]
     Active Substance: PROTHIPENDYL HYDROCHLORIDE
     Dosage: 80 MG, UNK
     Dates: start: 201412, end: 20150201
  25. SEROQUEL [Suspect]
     Active Substance: QUETIAPINE FUMARATE
     Dosage: 300 MG, UNK
     Dates: start: 20150120
  26. MONURIL [Concomitant]
     Active Substance: FOSFOMYCIN SODIUM
     Dosage: 3 G, UNK
     Dates: start: 20150205
  27. ZYPREXA [Concomitant]
     Active Substance: OLANZAPINE
     Dosage: 10 MG, UNK
     Dates: start: 20150214, end: 20150222

REACTIONS (1)
  - Delirium [Recovered/Resolved]

NARRATIVE: CASE EVENT DATE: 20150128
